FAERS Safety Report 24543025 (Version 1)
Quarter: 2024Q4

REPORT INFORMATION
  Report Type: Spontaneous
  Country: US (occurrence: US)
  Receive Date: 20241024
  Receipt Date: 20241024
  Transmission Date: 20250115
  Serious: No
  Sender: HIKMA
  Company Number: US-HIKMA PHARMACEUTICALS USA INC.-US-H14001-23-66528

PATIENT
  Sex: Male

DRUGS (2)
  1. MITIGARE [Suspect]
     Active Substance: COLCHICINE
     Indication: Product used for unknown indication
     Dosage: 1 DOSAGE FORM, QD
     Route: 065
  2. MITIGARE [Suspect]
     Active Substance: COLCHICINE
     Dosage: 2 DOSAGE FORM, QD
     Route: 065

REACTIONS (4)
  - Gout [Recovered/Resolved]
  - Pain in extremity [Recovered/Resolved]
  - Erythema [Recovered/Resolved]
  - Peripheral swelling [Recovered/Resolved]
